FAERS Safety Report 5410946-3 (Version None)
Quarter: 2007Q3

REPORT INFORMATION
  Report Type: 
  Country: None (occurrence: None)
  Receive Date: 20070810
  Receipt Date: 20070731
  Transmission Date: 20080115
  Serious: Yes (Hospitalization, Other)
  Sender: FDA-Public Use
  Company Number: US-ABBOTT-06P-163-0347810-00

PATIENT
  Sex: Female
  Weight: 82.628 kg

DRUGS (11)
  1. HUMIRA [Suspect]
     Indication: RHEUMATOID ARTHRITIS
     Route: 058
     Dates: start: 20050701
  2. ATORVASTATIN CALCIUM [Concomitant]
     Indication: DRUG USE FOR UNKNOWN INDICATION
     Route: 048
  3. GLYB-METFORM [Concomitant]
     Indication: DIABETES MELLITUS
     Route: 048
  4. POTASSIUM CHLORIDE [Concomitant]
     Indication: DRUG USE FOR UNKNOWN INDICATION
     Route: 048
  5. CLOPIDOGREL [Concomitant]
     Indication: CARDIAC DISORDER
     Route: 048
     Dates: start: 20060101
  6. ASPIRIN [Concomitant]
     Indication: BLOOD DISORDER
     Dosage: 1 PILL
     Route: 048
  7. INDUR/ISOSORBIDE [Concomitant]
     Indication: CARDIAC DISORDER
     Route: 048
  8. PREDNISONE TAB [Concomitant]
     Indication: RHEUMATOID ARTHRITIS
  9. FOSINOPRIL SODIUM [Concomitant]
     Indication: DRUG USE FOR UNKNOWN INDICATION
     Route: 048
  10. FLUID PILL [Concomitant]
     Indication: DRUG USE FOR UNKNOWN INDICATION
     Dosage: 1 PILL
     Route: 048
  11. ESOMEPRAZOLE MAGNESIUM [Concomitant]
     Indication: GASTRITIS PROPHYLAXIS
     Route: 048

REACTIONS (9)
  - BURNING SENSATION [None]
  - CHEST PAIN [None]
  - CORONARY ARTERY OCCLUSION [None]
  - DRY EYE [None]
  - EPISTAXIS [None]
  - FUNGAL INFECTION [None]
  - NASAL DRYNESS [None]
  - PRURITUS [None]
  - THROMBOSIS [None]
